FAERS Safety Report 13273582 (Version 1)
Quarter: 2017Q1

REPORT INFORMATION
  Report Type: Spontaneous
  Country: TW (occurrence: TW)
  Receive Date: 20170227
  Receipt Date: 20170227
  Transmission Date: 20170428
  Serious: Yes (Death, Hospitalization, Other)
  Sender: FDA-Public Use
  Company Number: TW-ACTELION-A-CH2017-149987

PATIENT
  Age: 65 Year
  Sex: Female
  Weight: 76.5 kg

DRUGS (2)
  1. OPSUMIT [Suspect]
     Active Substance: MACITENTAN
     Indication: PULMONARY ARTERIAL HYPERTENSION
     Dosage: 10 MG, OD
     Route: 048
     Dates: start: 20161229, end: 20170213
  2. VENTAVIS [Concomitant]
     Active Substance: ILOPROST
     Indication: PULMONARY ARTERIAL HYPERTENSION
     Route: 055

REACTIONS (24)
  - Cardiogenic shock [Fatal]
  - Cardiac arrest [Fatal]
  - Metabolic acidosis [Recovering/Resolving]
  - Hypotension [Fatal]
  - Multiple organ dysfunction syndrome [Fatal]
  - Upper respiratory tract infection [Fatal]
  - Dyspnoea [Fatal]
  - Abdominal pain [Fatal]
  - Lactic acidosis [Recovering/Resolving]
  - Right ventricular failure [Fatal]
  - Haemodynamic instability [Unknown]
  - Hepatic cirrhosis [Unknown]
  - Pulmonary hypertension [Fatal]
  - Cough [Fatal]
  - Urinary retention [Fatal]
  - Hypoglycaemia [Unknown]
  - Pulse absent [Fatal]
  - Respiratory failure [Unknown]
  - Coagulopathy [Unknown]
  - Nausea [Fatal]
  - Dizziness [Fatal]
  - Hepatic encephalopathy [Unknown]
  - Hepatic failure [Unknown]
  - Haemorrhoidal haemorrhage [Unknown]

NARRATIVE: CASE EVENT DATE: 201702
